FAERS Safety Report 25835806 (Version 1)
Quarter: 2025Q3

REPORT INFORMATION
  Report Type: Report from Study
  Country: CN (occurrence: CN)
  Receive Date: 20250923
  Receipt Date: 20250923
  Transmission Date: 20251020
  Serious: Yes (Other)
  Sender: ROCHE
  Company Number: CN-ROCHE-3571185

PATIENT
  Age: 66 Year
  Sex: Female
  Weight: 61.5 kg

DRUGS (23)
  1. POLATUZUMAB VEDOTIN [Suspect]
     Active Substance: POLATUZUMAB VEDOTIN
     Indication: Diffuse large B-cell lymphoma
     Dosage: FREQUENCY ONCE
     Route: 042
     Dates: start: 20231015, end: 20231015
  2. POLATUZUMAB VEDOTIN [Suspect]
     Active Substance: POLATUZUMAB VEDOTIN
     Route: 042
     Dates: start: 20231113, end: 20231113
  3. RITUXIMAB [Suspect]
     Active Substance: RITUXIMAB
     Indication: Diffuse large B-cell lymphoma
     Route: 042
     Dates: start: 20231014, end: 20231014
  4. RITUXIMAB [Suspect]
     Active Substance: RITUXIMAB
     Route: 042
     Dates: start: 20231112, end: 20231112
  5. RITUXIMAB [Suspect]
     Active Substance: RITUXIMAB
     Route: 042
     Dates: start: 20231207, end: 20231207
  6. IFOSFAMIDE [Suspect]
     Active Substance: IFOSFAMIDE
     Indication: Diffuse large B-cell lymphoma
     Route: 042
     Dates: start: 20231015, end: 20231017
  7. CARBOPLATIN [Suspect]
     Active Substance: CARBOPLATIN
     Indication: Diffuse large B-cell lymphoma
     Route: 042
     Dates: start: 20231114, end: 20231114
  8. CARBOPLATIN [Suspect]
     Active Substance: CARBOPLATIN
     Dosage: START DATE 14-NOV-2023
     Route: 042
     Dates: start: 20231016, end: 20231016
  9. ETOPOSIDE [Suspect]
     Active Substance: ETOPOSIDE
     Indication: Diffuse large B-cell lymphoma
     Dosage: START DATE 13-NOV-2023
     Route: 042
     Dates: start: 20231015, end: 20231017
  10. SELINEXOR [Suspect]
     Active Substance: SELINEXOR
     Indication: Diffuse large B-cell lymphoma
     Route: 048
     Dates: start: 20231015, end: 20231015
  11. OMEPRAZOLE [Concomitant]
     Active Substance: OMEPRAZOLE
  12. ACETAMINOPHEN [Concomitant]
     Active Substance: ACETAMINOPHEN
  13. PROMETHAZINE HYDROCHLORIDE [Concomitant]
     Active Substance: PROMETHAZINE HYDROCHLORIDE
  14. METHYLPREDNISOLONE SODIUM SUCCINATE [Concomitant]
     Active Substance: METHYLPREDNISOLONE SODIUM SUCCINATE
  15. ESOMEPRAZOLE [Concomitant]
     Active Substance: ESOMEPRAZOLE
  16. TRIMETAZIDINE DIHYDROCHLORIDE [Concomitant]
     Active Substance: TRIMETAZIDINE DIHYDROCHLORIDE
  17. MESNA [Concomitant]
     Active Substance: MESNA
  18. PALONOSETRON HYDROCHLORIDE [Concomitant]
     Active Substance: PALONOSETRON HYDROCHLORIDE
  19. UROKINASE [Concomitant]
     Active Substance: UROKINASE
  20. HEPARIN SODIUM [Concomitant]
     Active Substance: HEPARIN SODIUM
  21. NETUPITANT AND PALONOSETRON HYDROCHLORIDE [Concomitant]
  22. LIDOCAINE HYDROCHLORIDE [Concomitant]
     Active Substance: LIDOCAINE HYDROCHLORIDE
  23. LEUCOGEN [Concomitant]
     Active Substance: LEUCOGEN

REACTIONS (3)
  - Hypoproteinaemia [Recovered/Resolved]
  - Hypomagnesaemia [Recovering/Resolving]
  - Anaemia [Recovering/Resolving]

NARRATIVE: CASE EVENT DATE: 20231016
